FAERS Safety Report 13527076 (Version 1)
Quarter: 2017Q2

REPORT INFORMATION
  Report Type: Spontaneous
  Country: BR (occurrence: BR)
  Receive Date: 20170509
  Receipt Date: 20170509
  Transmission Date: 20170830
  Serious: Yes (Death, Other)
  Sender: FDA-Public Use
  Company Number: BR-PFIZER INC-2016466594

PATIENT
  Age: 80 Year
  Sex: Female

DRUGS (2)
  1. SUTENT [Suspect]
     Active Substance: SUNITINIB MALATE
     Indication: RENAL NEOPLASM
     Dosage: 50 MG, CYCLIC (CYCLE 2/1)
     Dates: start: 20160411, end: 20161218
  2. SUTENT [Suspect]
     Active Substance: SUNITINIB MALATE
     Dosage: UNK

REACTIONS (18)
  - Wound [Unknown]
  - Abdominal pain [Unknown]
  - Liver disorder [Unknown]
  - Varicose vein [Unknown]
  - Blood pressure fluctuation [Unknown]
  - Eating disorder [Recovered/Resolved]
  - Fatigue [Recovered/Resolved]
  - Dysgeusia [Recovered/Resolved]
  - Malaise [Recovered/Resolved]
  - Retching [Recovered/Resolved]
  - Angiopathy [Unknown]
  - Vomiting [Unknown]
  - Yellow skin [Unknown]
  - Sluggishness [Recovered/Resolved]
  - Decreased appetite [Unknown]
  - Anaemia [Unknown]
  - Cardiac arrest [Fatal]
  - Abasia [Unknown]

NARRATIVE: CASE EVENT DATE: 2016
